FAERS Safety Report 8272617-8 (Version None)
Quarter: 2012Q2

REPORT INFORMATION
  Report Type: 
  Country: None (occurrence: None)
  Receive Date: 20120410
  Receipt Date: 20120201
  Transmission Date: 20120825
  Serious: Yes (Hospitalization, Other)
  Sender: FDA-Public Use
  Company Number: PHHY2010CA68376

PATIENT
  Sex: Female

DRUGS (2)
  1. EXJADE [Suspect]
     Indication: AUTOIMMUNE LYMPHOPROLIFERATIVE SYNDROME
     Dosage: 500 MG, QD
     Route: 048
     Dates: start: 20090101
  2. EXJADE [Suspect]
     Dosage: 250 MG, QD
     Route: 048

REACTIONS (7)
  - LIVER FUNCTION TEST ABNORMAL [None]
  - SPLEEN DISORDER [None]
  - GASTRIC DISORDER [None]
  - DRUG INEFFECTIVE [None]
  - PNEUMONIA [None]
  - DIARRHOEA [None]
  - LUNG DISORDER [None]
